FAERS Safety Report 14953866 (Version 2)
Quarter: 2018Q3

REPORT INFORMATION
  Report Type: Spontaneous
  Country: AU (occurrence: AU)
  Receive Date: 20180530
  Receipt Date: 20180813
  Transmission Date: 20181010
  Serious: Yes (Hospitalization, Other)
  Sender: FDA-Public Use
  Company Number: AU-MYLANLABS-2018M1034950

PATIENT
  Sex: Male

DRUGS (7)
  1. EMTRICITABINE,TENOFOVIR MYLAN [Suspect]
     Active Substance: EMTRICITABINE\TENOFOVIR
     Dosage: 1 DF, QD (200/300 MG, QD)
     Route: 048
     Dates: start: 20180216
  2. TRUVADA [Suspect]
     Active Substance: EMTRICITABINE\TENOFOVIR DISOPROXIL FUMARATE
     Indication: PRODUCT USED FOR UNKNOWN INDICATION
     Dosage: UNK
     Dates: start: 20160421, end: 20170905
  3. BACTROBAN [Concomitant]
     Active Substance: MUPIROCIN\MUPIROCIN CALCIUM
     Indication: SKIN INFECTION
     Dosage: UNK UNK, PRN
     Dates: start: 20040915
  4. EMTRICITABINE,TENOFOVIR MYLAN [Suspect]
     Active Substance: EMTRICITABINE\TENOFOVIR
     Indication: PROPHYLAXIS AGAINST HIV INFECTION
     Dosage: 1 DF, QD (200/300 MG, QD)
     Route: 048
     Dates: start: 20170905, end: 20180216
  5. VALIUM [Concomitant]
     Active Substance: DIAZEPAM
     Indication: INSOMNIA
     Dosage: 5 MG, QD
     Dates: start: 20110502
  6. VIAGRA [Concomitant]
     Active Substance: SILDENAFIL CITRATE
     Indication: ERECTILE DYSFUNCTION
     Dosage: 100 MG, PRN 1?2 TABLETS AS NEEDED
     Dates: start: 20091019
  7. STILDEM [Concomitant]
     Indication: INSOMNIA
     Dosage: 10 MG, QD (1?2 DAILY)
     Dates: start: 20091019, end: 20171121

REACTIONS (1)
  - Pyrexia [Not Recovered/Not Resolved]
